FAERS Safety Report 9404056 (Version 1)
Quarter: 2013Q3

REPORT INFORMATION
  Report Type: Spontaneous
  Country: US (occurrence: US)
  Receive Date: 20130717
  Receipt Date: 20130717
  Transmission Date: 20140515
  Serious: Yes (Hospitalization)
  Sender: FDA-Public Use
  Company Number: US-SANOFI-AVENTIS-2013SA071002

PATIENT
  Age: 76 Year
  Sex: Female
  Weight: 64.41 kg

DRUGS (12)
  1. DESMOPRESSIN ACETATE [Suspect]
     Indication: DIABETES INSIPIDUS
     Route: 045
     Dates: start: 201301
  2. LIPITOR [Concomitant]
     Indication: BLOOD CHOLESTEROL INCREASED
     Route: 065
  3. JANUMET [Concomitant]
     Indication: DIABETES MELLITUS
     Route: 065
  4. AMLODIPINE [Concomitant]
     Indication: HYPERTENSION
     Route: 065
  5. CARVEDILOL [Concomitant]
     Indication: HYPERTENSION
     Route: 065
  6. PLAVIX [Concomitant]
     Route: 065
  7. PROTONIX [Concomitant]
     Route: 065
  8. THEOPHYLLINE [Concomitant]
     Route: 065
  9. OMEGA 3 [Concomitant]
     Indication: BLOOD CHOLESTEROL INCREASED
     Route: 065
  10. VITAMIN D [Concomitant]
     Route: 065
  11. ADVAIR [Concomitant]
     Indication: ASTHMA
     Route: 065
  12. TENEX [Concomitant]
     Route: 065

REACTIONS (5)
  - Venous thrombosis limb [Recovered/Resolved]
  - Asthma [Recovered/Resolved]
  - Blood sodium decreased [Recovered/Resolved]
  - Overdose [Unknown]
  - Product container issue [Unknown]
